FAERS Safety Report 12875842 (Version 1)
Quarter: 2016Q4

REPORT INFORMATION
  Report Type: Spontaneous
  Country: US (occurrence: US)
  Receive Date: 20161024
  Receipt Date: 20161024
  Transmission Date: 20170207
  Serious: No
  Sender: FDA-Public Use
  Company Number: US-JAZZ-2016-US-014994

PATIENT
  Age: 37 Year
  Sex: Female

DRUGS (19)
  1. XYREM [Suspect]
     Active Substance: SODIUM OXYBATE
     Indication: NARCOLEPSY
     Dosage: 2.25 G, BID
     Route: 048
     Dates: start: 201501, end: 201501
  2. XYREM [Suspect]
     Active Substance: SODIUM OXYBATE
     Indication: CATAPLEXY
     Dosage: 3 G, BID
     Route: 048
     Dates: start: 201501, end: 201603
  3. NUVIGIL [Concomitant]
     Active Substance: ARMODAFINIL
  4. NORCO [Concomitant]
     Active Substance: ACETAMINOPHEN\HYDROCODONE BITARTRATE
  5. PROMETHAZINE - CODEINE [Concomitant]
     Active Substance: CODEINE\PROMETHAZINE
  6. MULTIVITAMINS [Concomitant]
     Active Substance: VITAMINS
  7. AZITHROMYCIN ANHYDROUS. [Concomitant]
     Active Substance: AZITHROMYCIN ANHYDROUS
  8. VITAMIN D3 [Concomitant]
     Active Substance: CHOLECALCIFEROL
  9. ALBUTEROL. [Concomitant]
     Active Substance: ALBUTEROL
  10. DICLOFENAC SOD [Concomitant]
     Active Substance: DICLOFENAC SODIUM
  11. NAPROXEN. [Concomitant]
     Active Substance: NAPROXEN
  12. DOXYCYCLINE HYCLATE. [Concomitant]
     Active Substance: DOXYCYCLINE HYCLATE
  13. ROBITUSSIN COUGH + COLD [Concomitant]
  14. XYREM [Suspect]
     Active Substance: SODIUM OXYBATE
     Dosage: 4.5 G, BID
     Route: 048
     Dates: start: 201603
  15. COCONUT OIL [Concomitant]
     Active Substance: COCONUT OIL
  16. SINGULAIR [Concomitant]
     Active Substance: MONTELUKAST SODIUM
  17. NAPROSYN [Concomitant]
     Active Substance: NAPROXEN
  18. MEDROL [Concomitant]
     Active Substance: METHYLPREDNISOLONE
  19. ADDERALL [Concomitant]
     Active Substance: AMPHETAMINE ASPARTATE\AMPHETAMINE SULFATE\DEXTROAMPHETAMINE SACCHARATE\DEXTROAMPHETAMINE SULFATE

REACTIONS (1)
  - Tooth extraction [Unknown]

NARRATIVE: CASE EVENT DATE: 20160723
